FAERS Safety Report 6037728-6 (Version None)
Quarter: 2009Q1

REPORT INFORMATION
  Report Type: 
  Country: None (occurrence: None)
  Receive Date: 20090113
  Receipt Date: 20090103
  Transmission Date: 20090719
  Serious: Yes (Hospitalization, Other)
  Sender: FDA-Public Use
  Company Number: 230098K09USA

PATIENT
  Age: 44 Year
  Sex: Female

DRUGS (1)
  1. REBIF [Suspect]
     Indication: MULTIPLE SCLEROSIS
     Dosage: 44 MCG, 3 IN 1 WEEKS, SUBCUTANEOUS
     Route: 058
     Dates: start: 20081013

REACTIONS (4)
  - CARPAL TUNNEL SYNDROME [None]
  - FEELING OF BODY TEMPERATURE CHANGE [None]
  - MENSTRUAL DISORDER [None]
  - MENSTRUATION IRREGULAR [None]
